FAERS Safety Report 20710910 (Version 1)
Quarter: 2022Q2

REPORT INFORMATION
  Report Type: Spontaneous
  Country: US (occurrence: US)
  Receive Date: 20220414
  Receipt Date: 20220414
  Transmission Date: 20220721
  Serious: Yes (Other)
  Sender: FDA-Public Use
  Company Number: US-SCIEGENP-2022SCLIT00298

PATIENT
  Age: 18 Year
  Sex: Female

DRUGS (20)
  1. CLOPIDOGREL [Suspect]
     Active Substance: CLOPIDOGREL BISULFATE
     Indication: Antiphospholipid syndrome
     Route: 065
     Dates: start: 201803
  2. CLOPIDOGREL [Suspect]
     Active Substance: CLOPIDOGREL BISULFATE
     Route: 065
     Dates: start: 201804
  3. CLOPIDOGREL [Suspect]
     Active Substance: CLOPIDOGREL BISULFATE
     Route: 065
     Dates: start: 201904
  4. CLOPIDOGREL [Suspect]
     Active Substance: CLOPIDOGREL BISULFATE
     Route: 065
     Dates: start: 201906
  5. CLOPIDOGREL [Suspect]
     Active Substance: CLOPIDOGREL BISULFATE
     Route: 065
     Dates: start: 201910
  6. CLOPIDOGREL [Suspect]
     Active Substance: CLOPIDOGREL BISULFATE
     Route: 065
     Dates: start: 202006
  7. ASPIRIN [Suspect]
     Active Substance: ASPIRIN
     Indication: Antiphospholipid syndrome
     Route: 065
     Dates: start: 201611, end: 201612
  8. ASPIRIN [Suspect]
     Active Substance: ASPIRIN
     Route: 065
  9. WARFARIN [Suspect]
     Active Substance: WARFARIN
     Indication: Antiphospholipid syndrome
     Route: 065
  10. ENOXAPARIN [Suspect]
     Active Substance: ENOXAPARIN
     Indication: Antiphospholipid syndrome
     Route: 065
     Dates: start: 201607
  11. APIXABAN [Suspect]
     Active Substance: APIXABAN
     Indication: Antiphospholipid syndrome
     Dosage: TWICE DAILY FOR 7 DAYS
     Route: 065
     Dates: start: 201612
  12. APIXABAN [Suspect]
     Active Substance: APIXABAN
     Route: 065
     Dates: start: 201612
  13. APIXABAN [Suspect]
     Active Substance: APIXABAN
     Dosage: INCREASED FOR 1 WEEK 5MG TWICE A DAY TO 10MG TWICE A DAY
     Route: 065
     Dates: start: 201802
  14. HYDROXYCHLOROQUINE [Suspect]
     Active Substance: HYDROXYCHLOROQUINE
     Indication: Antiphospholipid syndrome
     Route: 065
  15. HYDROXYCHLOROQUINE [Suspect]
     Active Substance: HYDROXYCHLOROQUINE
     Route: 065
  16. METHYLPREDNISOLONE [Suspect]
     Active Substance: METHYLPREDNISOLONE
     Indication: Antiphospholipid syndrome
     Dosage: FOR 3 DAYS WAS STARTED OVER THE NEXT 6 WEEKS, METHYLPREDNISOLONE WAS TAPERED
     Route: 065
  17. PREDNISONE [Suspect]
     Active Substance: PREDNISONE
     Indication: Antiphospholipid syndrome
     Dosage: OVER THE NEXT 6 WEEKS PREDNISONE WERE TAPERED.
     Route: 065
     Dates: start: 201904, end: 2019
  18. RITUXIMAB [Suspect]
     Active Substance: RITUXIMAB
     Indication: Antiphospholipid syndrome
     Route: 065
  19. FONDAPARINUX [Suspect]
     Active Substance: FONDAPARINUX
     Indication: Antiphospholipid syndrome
     Route: 065
     Dates: start: 201804
  20. ECULIZUMAB [Concomitant]
     Active Substance: ECULIZUMAB
     Dosage: ALTERNATE WEEK INFUSION
     Route: 065
     Dates: start: 20190409

REACTIONS (3)
  - Deep vein thrombosis [Recovered/Resolved]
  - Hepatic infarction [Recovered/Resolved]
  - Treatment failure [Unknown]

NARRATIVE: CASE EVENT DATE: 20180301
